FAERS Safety Report 5392986-6 (Version None)
Quarter: 2007Q3

REPORT INFORMATION
  Report Type: 
  Country: None (occurrence: None)
  Receive Date: 20070719
  Receipt Date: 20070711
  Transmission Date: 20080115
  Serious: Yes (Hospitalization, Other)
  Sender: FDA-Public Use
  Company Number: 07-001480

PATIENT
  Age: 72 Year
  Sex: Female
  Weight: 69.8 kg

DRUGS (13)
  1. FEMRING [Suspect]
     Indication: VULVOVAGINAL DRYNESS
     Dosage: 0.05 MG, QD, VAGINAL
     Route: 067
     Dates: start: 20060101, end: 20070201
  2. AMIODARONE HCL [Concomitant]
  3. ASPIRIN [Concomitant]
  4. HYZAAR [Concomitant]
  5. IMDUR [Concomitant]
  6. LOPRESSOR [Concomitant]
  7. LUNESTA [Concomitant]
  8. NITROSTAT [Concomitant]
  9. ZANTAC 150 [Concomitant]
  10. DIGOXIN [Concomitant]
  11. ZOCOR [Concomitant]
  12. PLAVIX [Concomitant]
  13. ZOLOFT [Concomitant]

REACTIONS (9)
  - BIOPSY CERVIX ABNORMAL [None]
  - CHEST PAIN [None]
  - DIZZINESS [None]
  - FATIGUE [None]
  - FEELING ABNORMAL [None]
  - HEART RATE IRREGULAR [None]
  - OVARIAN CYST [None]
  - THROAT IRRITATION [None]
  - UTERINE ENLARGEMENT [None]
